FAERS Safety Report 10689292 (Version 1)
Quarter: 2015Q1

REPORT INFORMATION
  Report Type: Other
  Country: DE (occurrence: DE)
  Receive Date: 20150105
  Receipt Date: 20150105
  Transmission Date: 20150720
  Serious: Yes (Other)
  Sender: FDA-Public Use
  Company Number: DE-LUPIN PHARMACEUTICALS INC.-E2B_00003004

PATIENT
  Age: 28 Year
  Sex: Female

DRUGS (2)
  1. TOPIRAMAT [Suspect]
     Active Substance: TOPIRAMATE
     Indication: STATUS MIGRAINOSUS
     Route: 048
     Dates: start: 20140924, end: 20140927
  2. TOPIRAMAT [Suspect]
     Active Substance: TOPIRAMATE
     Route: 048
     Dates: start: 20140928, end: 20141008

REACTIONS (5)
  - Irritability [Recovering/Resolving]
  - Personality change [Recovering/Resolving]
  - Fatigue [Recovering/Resolving]
  - Suicidal ideation [Recovering/Resolving]
  - Disturbance in attention [Recovering/Resolving]

NARRATIVE: CASE EVENT DATE: 201410
